FAERS Safety Report 23469476 (Version 1)
Quarter: 2024Q1

REPORT INFORMATION
  Report Type: Spontaneous
  Country: US (occurrence: US)
  Receive Date: 20240202
  Receipt Date: 20240202
  Transmission Date: 20240410
  Serious: No
  Sender: FDA-Public Use
  Company Number: US-BoehringerIngelheim-2024-BI-005326

PATIENT
  Age: 65 Year
  Sex: Female

DRUGS (1)
  1. JARDIANCE [Suspect]
     Active Substance: EMPAGLIFLOZIN
     Indication: Product used for unknown indication
     Dates: start: 20231216, end: 20240126

REACTIONS (7)
  - Fungal infection [Recovering/Resolving]
  - Arthralgia [Recovering/Resolving]
  - Thirst [Recovering/Resolving]
  - Oliguria [Recovering/Resolving]
  - Somnolence [Recovering/Resolving]
  - Dehydration [Recovering/Resolving]
  - Weight decreased [Recovering/Resolving]

NARRATIVE: CASE EVENT DATE: 20231223
